FAERS Safety Report 19290142 (Version 2)
Quarter: 2021Q3

REPORT INFORMATION
  Report Type: Report from Study
  Country: US (occurrence: US)
  Receive Date: 20210522
  Receipt Date: 20210717
  Transmission Date: 20211014
  Serious: Yes (Other)
  Sender: FDA-Public Use
  Company Number: US-SHIRE-US201806941AA

PATIENT
  Age: 38 Year
  Sex: Female

DRUGS (2)
  1. HUMAN NORMAL IMMUNOGLOBULIN; LIQUID [Suspect]
     Active Substance: HUMAN IMMUNOGLOBULIN G
     Indication: PRIMARY IMMUNODEFICIENCY SYNDROME
     Route: 042
  2. CUVITRU [Suspect]
     Active Substance: HUMAN IMMUNOGLOBULIN G
     Indication: PRIMARY IMMUNODEFICIENCY SYNDROME
     Dosage: 30 GRAM, 1/WEEK
     Route: 065

REACTIONS (6)
  - Pulmonary fibrosis [Unknown]
  - Dysphonia [Unknown]
  - Immunoglobulins decreased [Unknown]
  - Cough [Unknown]
  - COVID-19 pneumonia [Unknown]
  - Acute lung injury [Unknown]

NARRATIVE: CASE EVENT DATE: 20180220
